FAERS Safety Report 5698405-4 (Version None)
Quarter: 2008Q2

REPORT INFORMATION
  Report Type: 
  Country: None (occurrence: None)
  Receive Date: 20080403
  Receipt Date: 20080320
  Transmission Date: 20081010
  Serious: Yes (Hospitalization)
  Sender: FDA-Public Use
  Company Number: 2008000638

PATIENT
  Sex: Male

DRUGS (3)
  1. TARCEVA [Suspect]
     Indication: DRUG USE FOR UNKNOWN INDICATION
     Dates: start: 20080303
  2. GEMCITABINE [Concomitant]
  3. CARBOPLATIN [Concomitant]

REACTIONS (6)
  - HYPOTENSION [None]
  - LEUKOCYTOSIS [None]
  - LUNG CONSOLIDATION [None]
  - MUCOSAL INFLAMMATION [None]
  - PERIPHERAL CIRCULATORY FAILURE [None]
  - STOMATITIS [None]
